FAERS Safety Report 19855331 (Version 1)
Quarter: 2021Q3

REPORT INFORMATION
  Report Type: Spontaneous
  Country: NO (occurrence: NO)
  Receive Date: 20210920
  Receipt Date: 20210920
  Transmission Date: 20211014
  Serious: Yes (Hospitalization, Other)
  Sender: FDA-Public Use
  Company Number: NVSC2021NO206466

PATIENT
  Age: 7 Year
  Sex: Male

DRUGS (1)
  1. KYMRIAH [Suspect]
     Active Substance: TISAGENLECLEUCEL
     Indication: PRODUCT USED FOR UNKNOWN INDICATION
     Dosage: UNK, ONCE/SINGLE
     Route: 042

REACTIONS (6)
  - C-reactive protein increased [Recovered/Resolved]
  - Cytokine release syndrome [Unknown]
  - Pyrexia [Recovered/Resolved]
  - Disease recurrence [Unknown]
  - B-cell aplasia [Recovering/Resolving]
  - Neutrophil count decreased [Unknown]
